FAERS Safety Report 8797507 (Version 2)
Quarter: 2015Q1

REPORT INFORMATION
  Report Type: Report from Study
  Country: US (occurrence: US)
  Receive Date: 20120919
  Receipt Date: 20150310
  Transmission Date: 20150721
  Serious: Yes (Death)
  Sender: FDA-Public Use
  Company Number: US-ROCHE-1103739

PATIENT
  Sex: Male

DRUGS (16)
  1. CARBOPLATIN. [Concomitant]
     Active Substance: CARBOPLATIN
     Route: 065
  2. TAXOTERE [Concomitant]
     Active Substance: DOCETAXEL
     Route: 065
  3. ZOMETA [Concomitant]
     Active Substance: ZOLEDRONIC ACID
     Route: 065
  4. AVASTIN [Suspect]
     Active Substance: BEVACIZUMAB
     Indication: LUNG NEOPLASM MALIGNANT
     Route: 065
  5. REMERON [Concomitant]
     Active Substance: MIRTAZAPINE
     Indication: DEPRESSION
  6. ALOXI [Concomitant]
     Active Substance: PALONOSETRON HYDROCHLORIDE
     Route: 065
  7. MARINOL (UNITED STATES) [Concomitant]
     Indication: DECREASED APPETITE
  8. EFFEXOR [Concomitant]
     Active Substance: VENLAFAXINE HYDROCHLORIDE
  9. AVASTIN [Suspect]
     Active Substance: BEVACIZUMAB
     Indication: OFF LABEL USE
  10. AVASTIN [Suspect]
     Active Substance: BEVACIZUMAB
     Indication: HAEMATOLOGICAL MALIGNANCY
     Route: 065
  11. NEULASTA [Concomitant]
     Active Substance: PEGFILGRASTIM
     Route: 058
  12. ARANESP [Concomitant]
     Active Substance: DARBEPOETIN ALFA
     Route: 065
  13. TAXOL [Suspect]
     Active Substance: PACLITAXEL
     Indication: PRODUCT USED FOR UNKNOWN INDICATION
     Route: 065
  14. LORTAB (UNITED STATES) [Concomitant]
     Indication: PAIN
  15. DURAGESIC [Concomitant]
     Active Substance: FENTANYL
  16. DECADRON [Concomitant]
     Active Substance: DEXAMETHASONE
     Route: 065

REACTIONS (11)
  - Death [Fatal]
  - Infusion related reaction [Unknown]
  - Vomiting [Unknown]
  - Anxiety [Unknown]
  - Neuropathy peripheral [Unknown]
  - Feeding disorder [Unknown]
  - Haemorrhage [Unknown]
  - Decreased appetite [Unknown]
  - Pain in extremity [Unknown]
  - Depression [Unknown]
  - Nausea [Unknown]
